FAERS Safety Report 7284353-5 (Version None)
Quarter: 2011Q1

REPORT INFORMATION
  Report Type: 
  Country: None (occurrence: None)
  Receive Date: 20110209
  Receipt Date: 20110112
  Transmission Date: 20110831
  Serious: Yes (Death)
  Sender: FDA-Public Use
  Company Number: US-BAYER-201036720NA

PATIENT
  Sex: Male
  Weight: 121.9 kg

DRUGS (33)
  1. PERCOCET [Concomitant]
  2. ACTOS [Concomitant]
  3. ZAROXOLYN [Concomitant]
  4. ZEMPLAR [Concomitant]
  5. NEPHROCAPS [FOLIC ACID,VITAMINS NOS] [Concomitant]
  6. LASIX [Concomitant]
     Dosage: UNK
     Dates: end: 20040201
  7. CALCIJEX [Concomitant]
  8. MAGNEVIST [Suspect]
     Indication: NUCLEAR MAGNETIC RESONANCE IMAGING
  9. SIROLIMUS [Concomitant]
  10. RAPAMUNE [Concomitant]
  11. OMNISCAN [Suspect]
     Indication: ANGIOGRAM
     Dosage: 27 ML, ONCE
     Route: 042
     Dates: start: 20060519, end: 20060519
  12. PROHANCE [Suspect]
     Indication: NUCLEAR MAGNETIC RESONANCE IMAGING
  13. MULTIHANCE [Suspect]
     Indication: NUCLEAR MAGNETIC RESONANCE IMAGING
  14. PREDNISONE [Concomitant]
     Dosage: UNK
     Dates: end: 20040201
  15. NORVASC [Concomitant]
     Dosage: UNK
     Dates: end: 20040201
  16. CELLCEPT [Concomitant]
  17. PHOSLO [Concomitant]
  18. VENOFER [Concomitant]
  19. DIGOXIN [Concomitant]
  20. WARFARIN SODIUM [Concomitant]
  21. OPTIMARK [Suspect]
     Indication: NUCLEAR MAGNETIC RESONANCE IMAGING
  22. RENAGEL [Concomitant]
  23. AMLODIPINE [Concomitant]
  24. METOPROLOL [Concomitant]
  25. ARANESP [Concomitant]
  26. NEURONTIN [Concomitant]
  27. LANTUS [Concomitant]
  28. EPOGEN [Concomitant]
  29. VASOTEC [ENALAPRILAT] [Concomitant]
  30. UNSPECIFIED GBCA [Suspect]
     Indication: NUCLEAR MAGNETIC RESONANCE IMAGING
     Dosage: 20 ML, ONCE
     Dates: start: 19980103, end: 19980103
  31. HUMALOG [Concomitant]
  32. OXYCODONE HCL [Concomitant]
  33. SPIRONOLACTONE [Concomitant]

REACTIONS (21)
  - JOINT STIFFNESS [None]
  - JOINT RANGE OF MOTION DECREASED [None]
  - PRURITUS [None]
  - SCAR [None]
  - DRY SKIN [None]
  - SKIN IRRITATION [None]
  - MOBILITY DECREASED [None]
  - PAIN [None]
  - ERYTHEMA [None]
  - PHYSICAL DISABILITY [None]
  - MUSCULOSKELETAL STIFFNESS [None]
  - NEPHROGENIC SYSTEMIC FIBROSIS [None]
  - SKIN HYPERTROPHY [None]
  - DISCOMFORT [None]
  - SKIN FISSURES [None]
  - GENERAL PHYSICAL HEALTH DETERIORATION [None]
  - DEFORMITY [None]
  - OEDEMA PERIPHERAL [None]
  - SKIN INDURATION [None]
  - MUSCULAR WEAKNESS [None]
  - SKIN DISCOLOURATION [None]
